FAERS Safety Report 7302838-X (Version None)
Quarter: 2011Q1

REPORT INFORMATION
  Report Type: 
  Country: None (occurrence: None)
  Receive Date: 20110218
  Receipt Date: 20110214
  Transmission Date: 20110831
  Serious: Yes (Other)
  Sender: FDA-Public Use
  Company Number: US-B.I. PHARMACEUTICALS,INC./RIDGEFIELD-2011-BP-01411BP

PATIENT
  Sex: Female

DRUGS (1)
  1. PRADAXA [Suspect]
     Indication: ATRIAL FIBRILLATION
     Dosage: 300 MG
     Route: 048
     Dates: start: 20110105, end: 20110202

REACTIONS (6)
  - CORNEAL DISORDER [None]
  - ABDOMINAL PAIN UPPER [None]
  - RETINAL DETACHMENT [None]
  - INTRAOCULAR PRESSURE INCREASED [None]
  - DIARRHOEA [None]
  - OESOPHAGEAL PAIN [None]
